FAERS Safety Report 26167320 (Version 1)
Quarter: 2025Q4

REPORT INFORMATION
  Report Type: Spontaneous
  Country: US (occurrence: US)
  Receive Date: 20251217
  Receipt Date: 20251217
  Transmission Date: 20260117
  Serious: No
  Sender: ROCHE
  Company Number: US-ROCHE-10000453129

PATIENT
  Sex: Female
  Weight: 79.38 kg

DRUGS (25)
  1. GAZYVA [Suspect]
     Active Substance: OBINUTUZUMAB
     Indication: Follicular lymphoma
     Route: 042
  2. GAZYVA [Suspect]
     Active Substance: OBINUTUZUMAB
  3. GAZYVA [Suspect]
     Active Substance: OBINUTUZUMAB
  4. GAZYVA [Suspect]
     Active Substance: OBINUTUZUMAB
  5. GAZYVA [Suspect]
     Active Substance: OBINUTUZUMAB
  6. GAZYVA [Suspect]
     Active Substance: OBINUTUZUMAB
  7. GAZYVA [Suspect]
     Active Substance: OBINUTUZUMAB
  8. GAZYVA [Suspect]
     Active Substance: OBINUTUZUMAB
  9. GAZYVA [Suspect]
     Active Substance: OBINUTUZUMAB
  10. GAZYVA [Suspect]
     Active Substance: OBINUTUZUMAB
  11. GAZYVA [Suspect]
     Active Substance: OBINUTUZUMAB
  12. RITUXIMAB [Suspect]
     Active Substance: RITUXIMAB
     Indication: Follicular lymphoma
  13. BENDAMUSTINE [Concomitant]
     Active Substance: BENDAMUSTINE
     Indication: Follicular lymphoma
  14. BENDAMUSTINE [Concomitant]
     Active Substance: BENDAMUSTINE
  15. BENDAMUSTINE [Concomitant]
     Active Substance: BENDAMUSTINE
  16. BENDAMUSTINE [Concomitant]
     Active Substance: BENDAMUSTINE
  17. BENDAMUSTINE [Concomitant]
     Active Substance: BENDAMUSTINE
  18. BENDAMUSTINE [Concomitant]
     Active Substance: BENDAMUSTINE
  19. BENDAMUSTINE [Concomitant]
     Active Substance: BENDAMUSTINE
  20. BENDAMUSTINE [Concomitant]
     Active Substance: BENDAMUSTINE
  21. BENDAMUSTINE [Concomitant]
     Active Substance: BENDAMUSTINE
  22. BENDAMUSTINE [Concomitant]
     Active Substance: BENDAMUSTINE
  23. BENDAMUSTINE [Concomitant]
     Active Substance: BENDAMUSTINE
  24. ARNUITY ELLIPTA [Concomitant]
     Active Substance: FLUTICASONE FUROATE
     Indication: Asthma
     Dosage: FORMULATION: INHALER
     Route: 055
  25. LORATADINE [Concomitant]
     Active Substance: LORATADINE
     Indication: Seasonal allergy
     Dosage: PATIENT TAKES 25 DOSES AS NEEDED
     Route: 048

REACTIONS (1)
  - Abdominal mass [Unknown]
